FAERS Safety Report 13305100 (Version 1)
Quarter: 2017Q1

REPORT INFORMATION
  Report Type: Spontaneous
  Country: US (occurrence: US)
  Receive Date: 20170307
  Receipt Date: 20170307
  Transmission Date: 20170428
  Serious: Yes (Hospitalization)
  Sender: FDA-Public Use
  Company Number: None

PATIENT
  Age: 60 Year
  Sex: Female

DRUGS (11)
  1. GABAPENTIN. [Concomitant]
     Active Substance: GABAPENTIN
  2. OXYCODO/APAP [Concomitant]
  3. DULOXETINE. [Concomitant]
     Active Substance: DULOXETINE
  4. LETROZOLE. [Concomitant]
     Active Substance: LETROZOLE
  5. LIDOCAINE. [Concomitant]
     Active Substance: LIDOCAINE
  6. PROCHLORPER [Concomitant]
  7. TIZANIDINE. [Concomitant]
     Active Substance: TIZANIDINE
  8. METOPROLOL TARTRATE. [Concomitant]
     Active Substance: METOPROLOL TARTRATE
  9. ONDANSETRON [Concomitant]
     Active Substance: ONDANSETRON
  10. IBRANCE [Suspect]
     Active Substance: PALBOCICLIB
     Indication: BREAST CANCER
     Dosage: 125 MG CAP QD1-21 BY MOUTH
     Route: 048
     Dates: start: 20170119
  11. OMEPRAZOLE. [Concomitant]
     Active Substance: OMEPRAZOLE

REACTIONS (1)
  - Surgery [None]

NARRATIVE: CASE EVENT DATE: 20170223
